FAERS Safety Report 5691631-X (Version None)
Quarter: 2008Q2

REPORT INFORMATION
  Report Type: 
  Country: None (occurrence: None)
  Receive Date: 20080402
  Receipt Date: 20080321
  Transmission Date: 20081010
  Serious: Yes (Hospitalization)
  Sender: FDA-Public Use
  Company Number: US-AMGEN-US271206

PATIENT
  Weight: 2.67 kg

DRUGS (15)
  1. ENBREL [Suspect]
     Route: 064
     Dates: start: 20061119, end: 20070808
  2. VITAMIN TAB [Concomitant]
     Route: 064
     Dates: start: 20061119, end: 20070808
  3. OMEGA 3 [Concomitant]
     Route: 064
     Dates: start: 20061118, end: 20061215
  4. TUMS [Concomitant]
     Route: 064
     Dates: start: 20061119, end: 20070808
  5. ADVIL [Concomitant]
     Route: 064
     Dates: start: 20070129, end: 20070129
  6. ADVIL [Concomitant]
     Route: 064
     Dates: start: 20070205, end: 20070603
  7. ROLAIDS [Concomitant]
     Route: 064
     Dates: start: 20061119, end: 20070131
  8. ROLAIDS [Concomitant]
     Route: 064
     Dates: start: 20070616, end: 20070808
  9. CALCIUM [Concomitant]
     Route: 064
     Dates: start: 20061119, end: 20070808
  10. IRON [Concomitant]
     Route: 064
     Dates: start: 20070616, end: 20070808
  11. BUTALBITAL [Concomitant]
     Route: 064
     Dates: start: 20070512, end: 20070520
  12. MAALOX [Concomitant]
     Route: 064
     Dates: start: 20070625, end: 20070828
  13. TERBUTALINE SULFATE [Concomitant]
     Route: 064
     Dates: start: 20070703, end: 20070703
  14. RHOGAM [Concomitant]
     Route: 064
     Dates: start: 20070603, end: 20070603
  15. UNSPECIFIED INTRAVENOUS FLUIDS [Concomitant]
     Route: 064
     Dates: start: 20070512, end: 20070512

REACTIONS (1)
  - JAUNDICE NEONATAL [None]
